FAERS Safety Report 7103903-2 (Version None)
Quarter: 2010Q4

REPORT INFORMATION
  Report Type: 
  Country: None (occurrence: None)
  Receive Date: 20101115
  Receipt Date: 20101109
  Transmission Date: 20110411
  Serious: Yes (Hospitalization)
  Sender: FDA-Public Use
  Company Number: FR-PFIZER INC-2010143693

PATIENT
  Age: 82 Year
  Sex: Female

DRUGS (9)
  1. TAHOR [Suspect]
     Dosage: 40 MG, 1X/DAY
     Route: 048
     Dates: start: 20100315, end: 20100715
  2. FUCIDINE [Interacting]
     Indication: STAPHYLOCOCCAL ABSCESS
     Dosage: 1.5 G, 1X/DAY
     Route: 048
     Dates: start: 20100310, end: 20100715
  3. DALACINE [Concomitant]
     Indication: STAPHYLOCOCCAL ABSCESS
     Dosage: 1.8 G, 1X/DAY
     Route: 048
     Dates: start: 20100310, end: 20100715
  4. IMOVANE [Concomitant]
     Dosage: 7.5/DAY
     Route: 048
  5. BISOPROLOL [Concomitant]
     Dosage: UNK
  6. OROCAL VITAMIN D [Concomitant]
     Dosage: 1 DF, 1X/DAY
  7. STRONTIUM RANELATE [Concomitant]
     Dosage: 1 DF, 1X/DAY
  8. SEROPRAM [Concomitant]
     Dosage: 20/DAY
  9. TRANSIPEG [Concomitant]
     Dosage: 2 DF, 1X/DAY

REACTIONS (4)
  - DRUG INTERACTION [None]
  - GENERAL PHYSICAL HEALTH DETERIORATION [None]
  - RENAL FAILURE ACUTE [None]
  - RHABDOMYOLYSIS [None]
